FAERS Safety Report 7496067-7 (Version None)
Quarter: 2011Q2

REPORT INFORMATION
  Report Type: 
  Country: None (occurrence: None)
  Receive Date: 20110523
  Receipt Date: 20100628
  Transmission Date: 20111010
  Serious: No
  Sender: FDA-Public Use
  Company Number: US-PFIZER INC-2010071738

PATIENT
  Sex: Female

DRUGS (1)
  1. FLAGYL [Suspect]
     Indication: LYME DISEASE
     Dosage: 500 MG, 2X/DAY
     Route: 048
     Dates: start: 20100521

REACTIONS (2)
  - PARAESTHESIA [None]
  - BURNING SENSATION [None]
